FAERS Safety Report 8898742 (Version 1)
Quarter: 2012Q4

REPORT INFORMATION
  Report Type: 
  Country: GB (occurrence: GB)
  Receive Date: 20121109
  Receipt Date: 20121109
  Transmission Date: 20130627
  Serious: Yes (Life-Threatening, Hospitalization, Other)
  Sender: FDA-Public Use
  Company Number: GB-TARO-2012P1062635

PATIENT
  Age: 61 Year
  Sex: Female

DRUGS (2)
  1. WARFARIN [Suspect]
     Indication: THROMBOSIS PROPHYLAXIS
  2. WARFARIN SODIUM [Suspect]
     Indication: PULMONARY EMBOLISM

REACTIONS (8)
  - Rash generalised [Unknown]
  - Dry skin [Unknown]
  - Skin necrosis [Unknown]
  - Hypercoagulation [Unknown]
  - Heparin-induced thrombocytopenia [Unknown]
  - Deep vein thrombosis [Unknown]
  - Gangrene [Unknown]
  - International normalised ratio increased [Unknown]
